FAERS Safety Report 9430475 (Version 1)
Quarter: 2013Q3

REPORT INFORMATION
  Report Type: Report from Study
  Country: US (occurrence: US)
  Receive Date: 20130730
  Receipt Date: 20130730
  Transmission Date: 20140515
  Serious: No
  Sender: FDA-Public Use
  Company Number: US-ABBOTT-13P-163-1082788-00

PATIENT
  Sex: Male

DRUGS (1)
  1. NIASPAN (COATED) [Suspect]
     Indication: PRODUCT USED FOR UNKNOWN INDICATION
     Dates: start: 201304

REACTIONS (5)
  - Hypertension [Unknown]
  - Myalgia [Unknown]
  - Erythema [Unknown]
  - Pain [Unknown]
  - Haemoptysis [Unknown]
